FAERS Safety Report 14463602 (Version 1)
Quarter: 2018Q1

REPORT INFORMATION
  Report Type: Other
  Country: US (occurrence: US)
  Receive Date: 20180130
  Receipt Date: 20180130
  Transmission Date: 20180509
  Serious: Yes (Hospitalization, Other)
  Sender: FDA-Public Use
  Company Number: US-ACORDA-ACO_133701_2017

PATIENT
  Age: 60 Year
  Sex: Female

DRUGS (1)
  1. AMPYRA [Suspect]
     Active Substance: DALFAMPRIDINE
     Indication: PRODUCT USED FOR UNKNOWN INDICATION
     Dosage: 10 MG, Q 12 HRS
     Route: 048
     Dates: start: 2016, end: 201701

REACTIONS (6)
  - Asthenia [Unknown]
  - Therapy cessation [Unknown]
  - Foot fracture [Unknown]
  - Fall [Unknown]
  - Vertigo [Unknown]
  - Mobility decreased [Unknown]

NARRATIVE: CASE EVENT DATE: 201701
